FAERS Safety Report 4830797-8 (Version None)
Quarter: 2005Q4

REPORT INFORMATION
  Report Type: 
  Country: None (occurrence: None)
  Receive Date: 20051117
  Receipt Date: 20050720
  Transmission Date: 20060501
  Serious: Yes (Life-Threatening, Hospitalization)
  Sender: FDA-Public Use
  Company Number: AU-MERCK-0507AUS00119

PATIENT
  Age: 68 Year
  Sex: Male

DRUGS (2)
  1. ZETIA [Suspect]
     Indication: HYPERCHOLESTEROLAEMIA
     Route: 048
     Dates: start: 20050501, end: 20050715
  2. TELMISARTAN [Concomitant]
     Route: 065

REACTIONS (3)
  - PANCREATITIS [None]
  - TREMOR [None]
  - URINE OUTPUT DECREASED [None]
